FAERS Safety Report 22962074 (Version 3)
Quarter: 2023Q4

REPORT INFORMATION
  Report Type: Report from Study
  Country: US (occurrence: US)
  Receive Date: 20230920
  Receipt Date: 20231025
  Transmission Date: 20240109
  Serious: Yes (Hospitalization, Other)
  Sender: FDA-Public Use
  Company Number: US-BIOVITRUM-2023-US-015030

PATIENT
  Age: 66 Year
  Sex: Male

DRUGS (2)
  1. DOPTELET [Suspect]
     Active Substance: AVATROMBOPAG MALEATE
     Indication: Product used for unknown indication
     Dosage: FREQUENCY: AS ORDERED.
     Route: 048
  2. DOPTELET [Suspect]
     Active Substance: AVATROMBOPAG MALEATE
     Dosage: FREQUENCY: AS ORDERED.
     Route: 048

REACTIONS (4)
  - Haematochezia [Recovering/Resolving]
  - Platelet disorder [Recovering/Resolving]
  - Drug effect less than expected [Unknown]
  - Internal haemorrhage [Unknown]
